FAERS Safety Report 9450164 (Version 1)
Quarter: 2013Q3

REPORT INFORMATION
  Report Type: Spontaneous
  Country: US (occurrence: US)
  Receive Date: 20130809
  Receipt Date: 20130809
  Transmission Date: 20140515
  Serious: No
  Sender: FDA-Public Use
  Company Number: US-GLAXOSMITHKLINE-A1016349A

PATIENT
  Age: 77 Year
  Sex: Male

DRUGS (2)
  1. REQUIP XL [Suspect]
     Indication: PARKINSON^S DISEASE
     Dosage: 6MG PER DAY
     Route: 048
     Dates: start: 201212
  2. SINEMET [Concomitant]

REACTIONS (1)
  - Drug ineffective [Recovering/Resolving]
